FAERS Safety Report 8958524 (Version 1)
Quarter: 2012Q4

REPORT INFORMATION
  Report Type: Spontaneous
  Country: UY (occurrence: None)
  Receive Date: 20121203
  Receipt Date: 20121203
  Transmission Date: 20130627
  Serious: Yes (Other)
  Sender: FDA-Public Use
  Company Number: VAL_01016_2012

PATIENT
  Sex: Male

DRUGS (1)
  1. CALCITRIOL [Suspect]
     Indication: HYPOTHYROIDISM
     Dosage: DF

REACTIONS (3)
  - Maternal drugs affecting foetus [None]
  - Caesarean section [None]
  - Foetal distress syndrome [None]
